FAERS Safety Report 21164662 (Version 1)
Quarter: 2022Q3

REPORT INFORMATION
  Report Type: Spontaneous
  Country: JP (occurrence: JP)
  Receive Date: 20220803
  Receipt Date: 20220803
  Transmission Date: 20221026
  Serious: Yes (Death, Hospitalization, Other)
  Sender: FDA-Public Use
  Company Number: JP-COSETTE-CP2022JP000089

PATIENT
  Age: 83 Year
  Sex: Female
  Weight: 58 kg

DRUGS (9)
  1. EFFIENT [Suspect]
     Active Substance: PRASUGREL HYDROCHLORIDE
     Indication: Acute myocardial infarction
     Route: 048
     Dates: start: 20170601, end: 20170601
  2. ASPIRIN [Suspect]
     Active Substance: ASPIRIN
     Indication: Product used for unknown indication
     Route: 048
     Dates: start: 20170602, end: 20170718
  3. WARFARIN [Suspect]
     Active Substance: WARFARIN
     Indication: Product used for unknown indication
     Route: 048
     Dates: start: 20170708, end: 20170709
  4. WARFARIN [Suspect]
     Active Substance: WARFARIN
     Route: 048
     Dates: start: 20170710, end: 20170718
  5. CLOPIDOGREL [Suspect]
     Active Substance: CLOPIDOGREL BISULFATE
     Indication: Product used for unknown indication
     Route: 048
     Dates: start: 20170609, end: 20170718
  6. HEPARIN [Suspect]
     Active Substance: HEPARIN SODIUM
     Indication: Product used for unknown indication
     Route: 042
     Dates: start: 20170601, end: 20170601
  7. SOLYUGEN G [Concomitant]
     Indication: Product used for unknown indication
     Route: 065
  8. PRIMPERAN [Concomitant]
     Active Substance: METOCLOPRAMIDE HYDROCHLORIDE
     Indication: Product used for unknown indication
     Route: 042
  9. NOREPINEPHRINE [Concomitant]
     Active Substance: NOREPINEPHRINE
     Indication: Product used for unknown indication
     Route: 065

REACTIONS (1)
  - Ventricle rupture [Fatal]

NARRATIVE: CASE EVENT DATE: 20170602
